FAERS Safety Report 13062072 (Version 1)
Quarter: 2016Q4

REPORT INFORMATION
  Report Type: Spontaneous
  Country: US (occurrence: US)
  Receive Date: 20161226
  Receipt Date: 20161226
  Transmission Date: 20170207
  Serious: No
  Sender: FDA-Public Use
  Company Number: US-009507513-1612USA010648

PATIENT

DRUGS (1)
  1. ZETIA [Suspect]
     Active Substance: EZETIMIBE
     Dosage: 10 MG, UNSPECIFIED FREQUENCY
     Route: 048

REACTIONS (3)
  - Product quality issue [Unknown]
  - Drug dose omission [Unknown]
  - No adverse event [Unknown]
